FAERS Safety Report 17943279 (Version 2)
Quarter: 2021Q3

REPORT INFORMATION
  Report Type: Spontaneous
  Country: US (occurrence: US)
  Receive Date: 20200625
  Receipt Date: 20210810
  Transmission Date: 20211014
  Serious: Yes (Other)
  Sender: FDA-Public Use
  Company Number: US-PFIZER INC-2015047402

PATIENT
  Age: 51 Year
  Sex: Female

DRUGS (1)
  1. LYRICA [Suspect]
     Active Substance: PREGABALIN
     Indication: BRAIN INJURY
     Dosage: UNK

REACTIONS (5)
  - Pain [Unknown]
  - Product dispensing error [Unknown]
  - Drug dependence [Unknown]
  - Movement disorder [Unknown]
  - Off label use [Unknown]
